FAERS Safety Report 7579974-6 (Version None)
Quarter: 2011Q2

REPORT INFORMATION
  Report Type: 
  Country: None (occurrence: None)
  Receive Date: 20110629
  Receipt Date: 20110621
  Transmission Date: 20111010
  Serious: Yes (Hospitalization)
  Sender: FDA-Public Use
  Company Number: JP-JNJFOC-20110607879

PATIENT
  Age: 6 Decade
  Sex: Male

DRUGS (1)
  1. FENTANYL-100 [Suspect]
     Indication: PRODUCT USED FOR UNKNOWN INDICATION
     Route: 062

REACTIONS (3)
  - CONDITION AGGRAVATED [None]
  - WRONG TECHNIQUE IN DRUG USAGE PROCESS [None]
  - SOMNOLENCE [None]
